FAERS Safety Report 23626737 (Version 4)
Quarter: 2024Q3

REPORT INFORMATION
  Report Type: Spontaneous
  Country: KR (occurrence: KR)
  Receive Date: 20240313
  Receipt Date: 20240823
  Transmission Date: 20241017
  Serious: No
  Sender: PFIZER
  Company Number: KR-PFIZER INC-PV202400023105

PATIENT
  Age: 7 Year

DRUGS (1)
  1. NGENLA [Suspect]
     Active Substance: SOMATROGON-GHLA
     Dosage: 8 MG, WEEKLY (ONCE A WEEK)
     Route: 058

REACTIONS (3)
  - Device delivery system issue [Unknown]
  - Device defective [Unknown]
  - Poor quality device used [Unknown]
